APPROVED DRUG PRODUCT: LACTULOSE
Active Ingredient: LACTULOSE
Strength: 10GM/15ML
Dosage Form/Route: SOLUTION;ORAL, RECTAL
Application: A076645 | Product #001 | TE Code: AA
Applicant: BAJAJ MEDICAL
Approved: Jul 28, 2003 | RLD: No | RS: No | Type: RX